FAERS Safety Report 7346813-8 (Version None)
Quarter: 2011Q1

REPORT INFORMATION
  Report Type: 
  Country: None (occurrence: None)
  Receive Date: 20110311
  Receipt Date: 20110301
  Transmission Date: 20110831
  Serious: Yes (Death, Hospitalization, Other)
  Sender: FDA-Public Use
  Company Number: US-CELGENEUS-163-21880-11012189

PATIENT
  Sex: Male

DRUGS (26)
  1. HUMALOG [Concomitant]
     Route: 065
  2. CARAFATE [Concomitant]
     Route: 065
  3. PROCRIT [Concomitant]
     Route: 065
  4. ZOFRAN [Concomitant]
     Route: 065
  5. ANTICOAGULATION [Concomitant]
     Indication: ATRIAL FIBRILLATION
     Route: 065
  6. ASPIRIN [Concomitant]
     Route: 065
  7. XYZAL [Concomitant]
     Route: 065
  8. NEXIUM [Concomitant]
     Route: 065
  9. VITAMIN B-12 [Concomitant]
     Route: 065
  10. LASIX [Concomitant]
     Route: 065
  11. PLENDIL [Concomitant]
     Route: 065
  12. MULTI-VITAMINS [Concomitant]
     Route: 065
  13. POTASSIUM [Concomitant]
     Route: 065
  14. OSTEO BI-FLEX [Concomitant]
     Route: 065
  15. ZOCOR [Concomitant]
     Route: 065
  16. REVLIMID [Suspect]
     Indication: MYELODYSPLASTIC SYNDROME
     Dosage: 5 MILLIGRAM
     Route: 048
     Dates: start: 20101214, end: 20110103
  17. ZYRTEC [Concomitant]
     Route: 065
  18. LISINOPRIL [Concomitant]
     Route: 065
  19. LANTUS [Concomitant]
     Route: 065
  20. ZYPREXA [Concomitant]
     Route: 065
     Dates: start: 20110101
  21. GLUCOSAMINE [Concomitant]
     Route: 065
  22. AMBIEN [Concomitant]
     Route: 065
  23. REMERON [Concomitant]
     Route: 065
     Dates: start: 20110101
  24. ABILIFY [Concomitant]
     Route: 065
     Dates: start: 20110101
  25. IRON [Concomitant]
     Route: 065
  26. AMIODARONE [Concomitant]
     Route: 065

REACTIONS (10)
  - RENAL FAILURE ACUTE [None]
  - OVERDOSE [None]
  - PNEUMONIA [None]
  - WEIGHT DECREASED [None]
  - THROMBOCYTOPENIA [None]
  - DECREASED APPETITE [None]
  - SUBARACHNOID HAEMORRHAGE [None]
  - MENTAL STATUS CHANGES [None]
  - ANAEMIA [None]
  - GENERAL PHYSICAL HEALTH DETERIORATION [None]
